FAERS Safety Report 14759096 (Version 6)
Quarter: 2019Q1

REPORT INFORMATION
  Report Type: Spontaneous
  Country: GB (occurrence: GB)
  Receive Date: 20180413
  Receipt Date: 20190318
  Transmission Date: 20190417
  Serious: Yes (Life-Threatening, Hospitalization, Other)
  Sender: FDA-Public Use
  Company Number: GB-MYLANLABS-2018M1023018

PATIENT
  Age: 67 Year
  Sex: Female

DRUGS (13)
  1. PROMETHAZINE [Suspect]
     Active Substance: PROMETHAZINE\PROMETHAZINE HYDROCHLORIDE
     Dosage: 40 MG, UNK
  2. SPIRONOLACTONE. [Concomitant]
     Active Substance: SPIRONOLACTONE
     Indication: PRODUCT USED FOR UNKNOWN INDICATION
     Dosage: UNK
  3. IVABRADINE [Concomitant]
     Active Substance: IVABRADINE
     Indication: CARDIAC DISORDER
     Dosage: 5 MG, UNK
     Route: 065
  4. PERINDOPRIL [Concomitant]
     Active Substance: PERINDOPRIL
     Indication: PRODUCT USED FOR UNKNOWN INDICATION
     Dosage: UNK
  5. PROMETHAZINE [Suspect]
     Active Substance: PROMETHAZINE\PROMETHAZINE HYDROCHLORIDE
     Indication: INSOMNIA
     Dosage: 10 MG, BID
     Route: 065
     Dates: start: 20180112, end: 20180113
  6. PROMETHAZINE [Suspect]
     Active Substance: PROMETHAZINE\PROMETHAZINE HYDROCHLORIDE
     Dosage: 20 MG, QD
     Dates: start: 20180112, end: 20180113
  7. BISOPROLOL [Concomitant]
     Active Substance: BISOPROLOL
     Indication: PRODUCT USED FOR UNKNOWN INDICATION
     Dosage: 2.5 MG, UNK
     Route: 065
  8. ZIMOVANE [Concomitant]
     Active Substance: ZOPICLONE
     Indication: SEDATIVE THERAPY
     Dosage: 2 DF, QD
     Route: 065
     Dates: start: 201801
  9. OMEPRAZOLE. [Suspect]
     Active Substance: OMEPRAZOLE
     Indication: PRODUCT USED FOR UNKNOWN INDICATION
     Dosage: 2 DF, QD
     Route: 048
  10. FUROSEMIDE. [Concomitant]
     Active Substance: FUROSEMIDE
     Indication: BLOOD PRESSURE MEASUREMENT
  11. PROMETHAZINE [Suspect]
     Active Substance: PROMETHAZINE\PROMETHAZINE HYDROCHLORIDE
     Dosage: UNK, QD
  12. FUROSEMIDE. [Concomitant]
     Active Substance: FUROSEMIDE
     Indication: HYPERTENSION
     Dosage: 40 MG, UNK
     Route: 065
  13. ZIMOVANE [Concomitant]
     Active Substance: ZOPICLONE
     Indication: INSOMNIA
     Dosage: 4 DF, QD
     Route: 065

REACTIONS (28)
  - Decreased appetite [Recovered/Resolved]
  - Heart rate increased [Recovering/Resolving]
  - Memory impairment [Recovering/Resolving]
  - Dizziness [Recovered/Resolved]
  - Hot flush [Recovered/Resolved]
  - Disturbance in attention [Recovering/Resolving]
  - Psychiatric symptom [Recovering/Resolving]
  - Fear [Recovering/Resolving]
  - Photosensitivity reaction [Recovered/Resolved]
  - Product substitution [Unknown]
  - Syncope [Recovered/Resolved]
  - Dry mouth [Recovered/Resolved]
  - Tremor [Unknown]
  - Dysuria [Recovered/Resolved]
  - Hypoaesthesia [Unknown]
  - Unevaluable event [Recovered/Resolved]
  - Suicidal ideation [Unknown]
  - Restlessness [Recovered/Resolved]
  - Cardiac disorder [Recovered/Resolved]
  - Disorientation [Recovered/Resolved]
  - Vision blurred [Recovered/Resolved]
  - Nightmare [Recovered/Resolved]
  - Mental disorder [Recovering/Resolving]
  - Confusional state [Recovered/Resolved]
  - Palpitations [Recovering/Resolving]
  - Malaise [Recovered/Resolved]
  - Loss of control of legs [Recovered/Resolved]
  - Eye disorder [Recovering/Resolving]

NARRATIVE: CASE EVENT DATE: 2018
